FAERS Safety Report 6590149-X (Version None)
Quarter: 2010Q1

REPORT INFORMATION
  Report Type: 
  Country: None (occurrence: None)
  Receive Date: 20100205
  Receipt Date: 20091021
  Transmission Date: 20100710
  Serious: Yes (Hospitalization)
  Sender: FDA-Public Use
  Company Number: AUR-APL-2009-01019

PATIENT
  Sex: Female

DRUGS (3)
  1. RISPERIDONE [Suspect]
  2. ZYPREXA [Suspect]
  3. TRIHEXYPHENIDYL HCL [Suspect]
     Indication: SCHIZOPHRENIA

REACTIONS (1)
  - DRUG INEFFECTIVE [None]
